FAERS Safety Report 8594708-4 (Version None)
Quarter: 2012Q3

REPORT INFORMATION
  Report Type: 
  Country: None (occurrence: None)
  Receive Date: 20120801
  Receipt Date: 20120718
  Transmission Date: 20120928
  Serious: Yes (Other)
  Sender: FDA-Public Use
  Company Number: GER/GER/12/0025148

PATIENT
  Age: 40 Year
  Sex: Female
  Weight: 64 kg

DRUGS (3)
  1. VENLAFAXINE HCL [Suspect]
     Indication: BORDERLINE PERSONALITY DISORDER
     Dosage: 150 MG, UP T GESTATIONAL WEEK 26., ORAL
     Route: 048
  2. FOLSAURE (FOLIC ACID) [Concomitant]
  3. CITALOPRAM HYDROBROMIDE [Suspect]
     Indication: BORDERLINE PERSONALITY DISORDER
     Dosage: 40 MG, FROM GESTATIONAL WEEK 26-32., ORAL
     Route: 048
     Dates: end: 20111118

REACTIONS (3)
  - CAESAREAN SECTION [None]
  - PREMATURE DELIVERY [None]
  - MATERNAL EXPOSURE DURING PREGNANCY [None]
